FAERS Safety Report 26013705 (Version 1)
Quarter: 2025Q4

REPORT INFORMATION
  Report Type: Spontaneous
  Country: US (occurrence: US)
  Receive Date: 20251107
  Receipt Date: 20251107
  Transmission Date: 20260117
  Serious: Yes (Hospitalization, Other)
  Sender: PURDUE
  Company Number: US-PURDUE-USA-2025-0321900

PATIENT
  Age: 11 Year
  Sex: Male

DRUGS (3)
  1. LISDEXAMFETAMINE DIMESYLATE [Suspect]
     Active Substance: LISDEXAMFETAMINE DIMESYLATE
     Indication: Attention deficit hyperactivity disorder
     Dosage: 30 MILLIGRAM, DAILY
     Route: 048
  2. GUANFACINE [Suspect]
     Active Substance: GUANFACINE
     Indication: Attention deficit hyperactivity disorder
     Dosage: 3 MILLIGRAM, DAILY
     Route: 065
  3. CLONIDINE [Suspect]
     Active Substance: CLONIDINE
     Indication: Attention deficit hyperactivity disorder
     Dosage: 0.1 MILLIGRAM, DAILY
     Route: 065

REACTIONS (7)
  - Hypertensive urgency [Unknown]
  - Left ventricular hypertrophy [Unknown]
  - Gastroenteritis viral [Unknown]
  - Hypertension [Recovering/Resolving]
  - Headache [Recovering/Resolving]
  - Drug withdrawal syndrome [Unknown]
  - Product dose omission issue [Unknown]
